FAERS Safety Report 8454314-9 (Version None)
Quarter: 2012Q2

REPORT INFORMATION
  Report Type: 
  Country: None (occurrence: None)
  Receive Date: 20120620
  Receipt Date: 20120521
  Transmission Date: 20120825
  Serious: Yes (Hospitalization)
  Sender: FDA-Public Use
  Company Number: PHHY2012US051190

PATIENT
  Age: 65 Year
  Sex: Male

DRUGS (2)
  1. AFINITOR [Suspect]
     Dosage: 10 MG, DAILY
     Route: 048
  2. AFINITOR [Suspect]
     Indication: NON-SMALL CELL LUNG CANCER
     Dosage: 10 MG, DAILY
     Route: 048

REACTIONS (5)
  - PLEURAL EFFUSION [None]
  - NEOPLASM PROGRESSION [None]
  - NEOPLASM MALIGNANT [None]
  - LUNG DISORDER [None]
  - BRONCHITIS [None]
